FAERS Safety Report 14359939 (Version 1)
Quarter: 2018Q1

REPORT INFORMATION
  Report Type: Spontaneous
  Country: US (occurrence: US)
  Receive Date: 20180105
  Receipt Date: 20180105
  Transmission Date: 20180509
  Serious: No
  Sender: FDA-Public Use
  Company Number: US-SA-2017SA226925

PATIENT
  Age: 70 Year
  Sex: Female

DRUGS (1)
  1. ZANTAC 75 [Suspect]
     Active Substance: RANITIDINE HYDROCHLORIDE
     Indication: DYSPEPSIA
     Route: 048

REACTIONS (6)
  - Abdominal pain upper [Unknown]
  - Therapeutic response decreased [Unknown]
  - Eructation [Unknown]
  - Dyspepsia [Unknown]
  - Headache [Unknown]
  - Gastrointestinal sounds abnormal [Unknown]
